FAERS Safety Report 11010348 (Version 3)
Quarter: 2015Q4

REPORT INFORMATION
  Report Type: Report from Study
  Country: DE (occurrence: DE)
  Receive Date: 20150410
  Receipt Date: 20151215
  Transmission Date: 20160304
  Serious: Yes (Other)
  Sender: FDA-Public Use
  Company Number: DE-SA-2015SA045099

PATIENT
  Age: 51 Year
  Sex: Female
  Weight: 55 kg

DRUGS (3)
  1. CIPRALEX [Concomitant]
     Active Substance: ESCITALOPRAM OXALATE
     Indication: DEPRESSION
     Route: 048
     Dates: start: 20140515
  2. RESTEX [Concomitant]
     Active Substance: BENSERAZIDE
     Indication: RESTLESS LEGS SYNDROME
     Route: 048
     Dates: start: 20141215
  3. AUBAGIO [Suspect]
     Active Substance: TERIFLUNOMIDE
     Indication: RELAPSING-REMITTING MULTIPLE SCLEROSIS
     Route: 048
     Dates: start: 20141229

REACTIONS (5)
  - Respiratory tract infection [Recovered/Resolved]
  - Nasopharyngitis [Recovered/Resolved]
  - Headache [Recovered/Resolved]
  - Cough [Recovered/Resolved]
  - Rhinitis [Unknown]

NARRATIVE: CASE EVENT DATE: 20150302
